FAERS Safety Report 9046543 (Version 1)
Quarter: 2013Q1

REPORT INFORMATION
  Report Type: Spontaneous
  Country: US (occurrence: None)
  Receive Date: 20130128
  Receipt Date: 20130128
  Transmission Date: 20140127
  Serious: Yes (Other)
  Sender: FDA-Public Use
  Company Number: None

PATIENT
  Age: 56 Year
  Sex: Female
  Weight: 140.62 kg

DRUGS (1)
  1. JANUVIA [Suspect]
     Indication: DIABETES MELLITUS
     Route: 048
     Dates: start: 20121201, end: 20130117

REACTIONS (7)
  - Arthralgia [None]
  - Joint stiffness [None]
  - Joint crepitation [None]
  - Musculoskeletal stiffness [None]
  - Pain in extremity [None]
  - Pain in extremity [None]
  - Mobility decreased [None]
